FAERS Safety Report 5811370-1 (Version None)
Quarter: 2008Q3

REPORT INFORMATION
  Report Type: 
  Country: None (occurrence: None)
  Receive Date: 20080714
  Receipt Date: 20080702
  Transmission Date: 20090109
  Serious: Yes (Other)
  Sender: FDA-Public Use
  Company Number: 2008017881

PATIENT

DRUGS (4)
  1. CETIRIZINE HCL [Suspect]
     Indication: MASTOCYTOSIS
  2. LORATADINE [Concomitant]
  3. CROMOGLICATE SODIUM (CROMOGLICATE SODIUM) [Suspect]
  4. RANITIDINE [Concomitant]

REACTIONS (4)
  - DRUG EXPOSURE DURING PREGNANCY [None]
  - HYDROCELE [None]
  - MATERNAL DRUGS AFFECTING FOETUS [None]
  - PREMATURE BABY [None]
